FAERS Safety Report 9669235 (Version 1)
Quarter: 2013Q4

REPORT INFORMATION
  Report Type: Spontaneous
  Country: FR (occurrence: FR)
  Receive Date: 20131105
  Receipt Date: 20131105
  Transmission Date: 20140711
  Serious: Yes (Other)
  Sender: FDA-Public Use
  Company Number: FR-ABBVIE-13P-056-1166248-00

PATIENT
  Age: 53 Year
  Sex: Male

DRUGS (4)
  1. ZECLAR [Suspect]
     Indication: SUPERINFECTION
     Route: 048
     Dates: start: 20130910, end: 20130910
  2. CIALIS [Interacting]
     Indication: SEXUAL DYSFUNCTION
     Dosage: 8 TO 10 MG
     Route: 048
     Dates: start: 20130910, end: 20130910
  3. ZYLORIC [Concomitant]
     Indication: HYPERURICAEMIA
     Route: 048
  4. MAXEPA [Concomitant]
     Indication: HYPERLIPIDAEMIA
     Route: 048

REACTIONS (3)
  - Deafness [Not Recovered/Not Resolved]
  - Tinnitus [Not Recovered/Not Resolved]
  - Drug interaction [Recovered/Resolved]
